FAERS Safety Report 5766465-8 (Version None)
Quarter: 2008Q2

REPORT INFORMATION
  Report Type: 
  Country: None (occurrence: None)
  Receive Date: 20080606
  Receipt Date: 20080523
  Transmission Date: 20081010
  Serious: Yes (Death)
  Sender: FDA-Public Use
  Company Number: CLOF-1000187

PATIENT
  Age: 73 Year

DRUGS (1)
  1. CLOFARABINE (CLOFARABINE) SOLUTION FOR INFUSION [Suspect]
     Indication: ACUTE LEUKAEMIA
     Dosage: 1, INTRAVENOUS
     Route: 042
     Dates: start: 20080320, end: 20080324

REACTIONS (1)
  - UNRESPONSIVE TO STIMULI [None]
